FAERS Safety Report 8221627 (Version 2)
Quarter: 2012Q4

REPORT INFORMATION
  Report Type: 
  Country: ES (occurrence: ES)
  Receive Date: 20111102
  Receipt Date: 20120910
  Transmission Date: 20130627
  Serious: Yes (Life-Threatening, Other)
  Sender: FDA-Public Use
  Company Number: ES-ROCHE-1008723

PATIENT
  Age: 32 Year
  Sex: Female

DRUGS (13)
  1. XOLAIR [Suspect]
     Indication: PRODUCT USED FOR UNKNOWN INDICATION
     Route: 058
  2. SPIRIVA [Concomitant]
  3. ANASMA [Concomitant]
  4. FLIXOTIDE [Concomitant]
  5. HIDROALTESONA [Concomitant]
  6. DACORTIN [Concomitant]
  7. TRAMADOL [Concomitant]
  8. ANTIHISTAMINICS [Concomitant]
  9. OMEPRAZOLE [Concomitant]
  10. SINGULAIR [Concomitant]
  11. ALPRAZOLAM [Concomitant]
  12. RANITIDIN [Concomitant]
  13. HIDROXIL B12 B6 B1 [Concomitant]

REACTIONS (1)
  - Anaphylactic shock [Recovered/Resolved]
